FAERS Safety Report 11391190 (Version 1)
Quarter: 2015Q3

REPORT INFORMATION
  Report Type: Spontaneous
  Country: US (occurrence: None)
  Receive Date: 20150814
  Receipt Date: 20150814
  Transmission Date: 20151125
  Serious: Yes (Hospitalization)
  Sender: FDA-Public Use
  Company Number: None

PATIENT
  Age: 74 Year
  Sex: Male
  Weight: 79.3 kg

DRUGS (2)
  1. AMLODIPINE [Suspect]
     Active Substance: AMLODIPINE BESYLATE
     Indication: HYPERTENSION
     Route: 048
     Dates: start: 20140520, end: 20140521
  2. DOXORUBICIN [Suspect]
     Active Substance: DOXORUBICIN
     Indication: HEPATIC CANCER
     Route: 042
     Dates: start: 20140520, end: 20140520

REACTIONS (5)
  - Rash [None]
  - Pruritus [None]
  - Petechiae [None]
  - Oedema peripheral [None]
  - Urticaria [None]

NARRATIVE: CASE EVENT DATE: 20140520
